FAERS Safety Report 13998819 (Version 1)
Quarter: 2017Q3

REPORT INFORMATION
  Report Type: Not Available
  Country: US (occurrence: US)
  Receive Date: 20170921
  Receipt Date: 20170921
  Transmission Date: 20171128
  Serious: No
  Sender: FDA-Public Use
  Company Number: US-NEUROCRINE BIOSCIENCES INC.-2017NBI00593

PATIENT
  Age: 64 Year
  Sex: Female

DRUGS (7)
  1. WELLBUTRIN [Concomitant]
     Active Substance: BUPROPION HYDROCHLORIDE
  2. MULTIVITAMIN [Concomitant]
     Active Substance: VITAMINS
  3. IMITREX [Concomitant]
     Active Substance: SUMATRIPTAN SUCCINATE
  4. AMANTADINE. [Concomitant]
     Active Substance: AMANTADINE HYDROCHLORIDE
  5. TURMERIC [Concomitant]
     Active Substance: HERBALS\TURMERIC
  6. INGREZZA [Suspect]
     Active Substance: VALBENAZINE
     Indication: PRODUCT USED FOR UNKNOWN INDICATION
     Route: 048
     Dates: start: 20170714
  7. CANDESARTAN. [Concomitant]
     Active Substance: CANDESARTAN

REACTIONS (2)
  - Anxiety [Unknown]
  - Tremor [Unknown]

NARRATIVE: CASE EVENT DATE: 20170803
